FAERS Safety Report 8389059-7 (Version None)
Quarter: 2012Q2

REPORT INFORMATION
  Report Type: 
  Country: None (occurrence: None)
  Receive Date: 20120528
  Receipt Date: 20120522
  Transmission Date: 20120825
  Serious: Yes (Other)
  Sender: FDA-Public Use
  Company Number: PHFR2012GB003102

PATIENT
  Sex: Male

DRUGS (2)
  1. CLOZARIL [Suspect]
     Dosage: 900 MG, UNK
     Route: 048
     Dates: start: 20120522
  2. CLOZARIL [Suspect]
     Indication: SCHIZOPHRENIA
     Dosage: 225 MG, UNK
     Route: 048
     Dates: start: 20060901

REACTIONS (1)
  - INCORRECT DOSE ADMINISTERED [None]
